FAERS Safety Report 16393268 (Version 1)
Quarter: 2019Q2

REPORT INFORMATION
  Report Type: Spontaneous
  Country: US (occurrence: US)
  Receive Date: 20190605
  Receipt Date: 20190605
  Transmission Date: 20190711
  Serious: Yes (Other)
  Sender: FDA-Public Use
  Company Number: US-SA-2019SA152466

PATIENT
  Sex: Female

DRUGS (2)
  1. DUPIXENT [Suspect]
     Active Substance: DUPILUMAB
     Indication: NEURODERMATITIS
     Dosage: 600 MG, 1X
     Dates: start: 201802, end: 201802
  2. DUPIXENT [Suspect]
     Active Substance: DUPILUMAB
     Dosage: 300 MG, QOW

REACTIONS (10)
  - Eye haemorrhage [Unknown]
  - Condition aggravated [Unknown]
  - Post procedural complication [Unknown]
  - Eye pain [Unknown]
  - Eye irritation [Unknown]
  - Pain [Unknown]
  - Retinal tear [Unknown]
  - Visual impairment [Unknown]
  - Product use in unapproved indication [Unknown]
  - Diabetic eye disease [Unknown]
